FAERS Safety Report 9656171 (Version 1)
Quarter: 2013Q4

REPORT INFORMATION
  Report Type: Spontaneous
  Country: US (occurrence: None)
  Receive Date: 20131029
  Receipt Date: 20131029
  Transmission Date: 20140711
  Serious: Yes (Life-Threatening, Hospitalization)
  Sender: FDA-Public Use
  Company Number: None

PATIENT
  Age: 78 None
  Sex: Female
  Weight: 74.39 kg

DRUGS (14)
  1. CRESTOR [Suspect]
     Indication: BLOOD CHOLESTEROL
     Route: 048
     Dates: start: 20130307, end: 20130326
  2. PRONEB [Concomitant]
  3. SYMBICORT [Concomitant]
  4. ALBUTEROL [Concomitant]
  5. SYNTHROID [Concomitant]
  6. DIOVAN [Concomitant]
  7. CELEXA [Concomitant]
  8. LASIX [Concomitant]
  9. XANAZ [Concomitant]
  10. ALBUTEROL SULFATE INHALANT SOLUTION [Concomitant]
  11. RED YEAST RICE [Concomitant]
  12. CO Q 10 [Concomitant]
  13. OMEGA 3 [Concomitant]
  14. CENTRUM FOR WOMEN [Concomitant]

REACTIONS (3)
  - Nausea [None]
  - Malaise [None]
  - Asthenia [None]
